FAERS Safety Report 11291955 (Version 1)
Quarter: 2015Q3

REPORT INFORMATION
  Report Type: Spontaneous
  Country: US (occurrence: US)
  Receive Date: 20150722
  Receipt Date: 20150722
  Transmission Date: 20151125
  Serious: No
  Sender: FDA-Public Use
  Company Number: US-BAYER-2015-378017

PATIENT
  Age: 73 Year
  Sex: Female
  Weight: 58.96 kg

DRUGS (5)
  1. CITRACAL PETITES [Concomitant]
     Active Substance: CALCIUM CITRATE
     Dosage: 1 DF, QD
     Route: 048
     Dates: start: 2005
  2. OMEPRAZOLE. [Concomitant]
     Active Substance: OMEPRAZOLE
  3. ALEVE [Suspect]
     Active Substance: NAPROXEN SODIUM
     Indication: ARTHRITIS
     Dosage: 2 DF, QD WITH FOOD
     Route: 048
     Dates: start: 201501
  4. VITAMIN C [Concomitant]
     Active Substance: ASCORBIC ACID
  5. ALEVE [Suspect]
     Active Substance: NAPROXEN SODIUM
     Indication: ARTHRITIS
     Dosage: 2 DF, QD
     Route: 048
     Dates: start: 2015, end: 20150710

REACTIONS (1)
  - Product use issue [Unknown]

NARRATIVE: CASE EVENT DATE: 201501
